FAERS Safety Report 20794299 (Version 1)
Quarter: 2022Q2

REPORT INFORMATION
  Report Type: Spontaneous
  Country: US (occurrence: US)
  Receive Date: 20220506
  Receipt Date: 20220506
  Transmission Date: 20220720
  Serious: No
  Sender: FDA-Public Use
  Company Number: US-GLAXOSMITHKLINE-US2022AMR072467

PATIENT
  Age: 65 Year
  Sex: Female

DRUGS (2)
  1. FLOLAN [Suspect]
     Active Substance: EPOPROSTENOL SODIUM
     Indication: Pulmonary arterial hypertension
     Dosage: 14 NG/KG, CO, 14 NG/KG/MIN (15000 NG/ML)
     Dates: start: 20220207
  2. GLYCINE\MANNITOL\SODIUM CHLORIDE [Suspect]
     Active Substance: GLYCINE\MANNITOL\SODIUM CHLORIDE
     Indication: Pulmonary arterial hypertension
     Dosage: UNK
     Dates: start: 20220207

REACTIONS (3)
  - Dyspnoea [Unknown]
  - Pain in jaw [Unknown]
  - Flushing [Unknown]

NARRATIVE: CASE EVENT DATE: 20220401
